FAERS Safety Report 10367843 (Version 1)
Quarter: 2014Q1

REPORT INFORMATION
  Report Type: Spontaneous
  Country: US (occurrence: None)
  Receive Date: 20140306
  Receipt Date: 20140306
  Transmission Date: 20141002
  Serious: Yes (Other)
  Sender: FDA-Public Use
  Company Number: 163-21880-13082155

PATIENT
  Age: 79 Year
  Sex: Male

DRUGS (5)
  1. REVLIMID (LENALIDOMIDE) (10 MILLIGRAM, CAPSULES) [Suspect]
     Indication: PLASMA CELL MYELOMA
     Dosage: 10 MG, 21 IN 21 D, PO
     Route: 048
     Dates: start: 20130805, end: 20130812
  2. ARICEPT (DONEPEZIL HYDROCHLORIDE) [Suspect]
  3. NAMENDA (MEMANTINE HYDROCHLORIDE) [Concomitant]
  4. PRADAXA (DABIGATRAN ETEXILATE MESILATE) [Concomitant]
  5. GABAPENTIN (GABAPENTIN) [Concomitant]

REACTIONS (8)
  - Gout [None]
  - Paraesthesia [None]
  - Nervousness [None]
  - Back pain [None]
  - Pruritus [None]
  - Haemoglobin decreased [None]
  - Asthenia [None]
  - Arthritis [None]
